FAERS Safety Report 6746041-0 (Version None)
Quarter: 2010Q2

REPORT INFORMATION
  Report Type: 
  Country: None (occurrence: None)
  Receive Date: 20100528
  Receipt Date: 20100514
  Transmission Date: 20101027
  Serious: Yes (Hospitalization)
  Sender: FDA-Public Use
  Company Number: US-ELI_LILLY_AND_COMPANY-US201005004742

PATIENT
  Sex: Male

DRUGS (14)
  1. FORTEO [Suspect]
     Indication: OSTEOPOROSIS
     Dosage: 20 UG, DAILY (1/D)
     Dates: start: 20100505, end: 20100506
  2. LEVOTHYROXINE SODIUM [Concomitant]
     Indication: THYROID DISORDER
     Dosage: 0.2 MG, DAILY (1/D)
  3. DIOVAN [Concomitant]
     Indication: BLOOD PRESSURE
     Dosage: 160 MG, 2/D
     Dates: start: 20080101
  4. LYRICA [Concomitant]
     Indication: NEURALGIA
     Dosage: 75 MG, 3/D
     Dates: start: 20080101
  5. PROVIGIL [Concomitant]
     Indication: FATIGUE
     Dosage: 100 MG, 2/D
     Dates: start: 20070101
  6. CONCERTA [Concomitant]
     Indication: FATIGUE
     Dosage: 36 MG, 2/D
     Dates: start: 20070101
  7. NEFAZODONE HCL [Concomitant]
     Indication: ANTIDEPRESSANT THERAPY
     Dosage: 400 MG, 3/D
     Dates: start: 20060101
  8. PREDNISONE TAB [Concomitant]
     Indication: ADDISON'S DISEASE
     Dosage: 5 MG, DAILY (1/D)
     Dates: start: 20100401
  9. ANDROGEL [Concomitant]
     Indication: BLOOD TESTOSTERONE
     Dosage: 6 G, DAILY (1/D)
     Dates: start: 20000101
  10. VITAMIN B-12 [Concomitant]
     Dosage: 500 UG, 2/D
  11. FERROUS SULFATE TAB [Concomitant]
     Dosage: 325 MEQ, DAILY (1/D)
     Dates: start: 20091101
  12. PRAVASTATIN [Concomitant]
     Dosage: 20 MG, DAILY (1/D)
     Dates: start: 20070101
  13. OPANA [Concomitant]
     Indication: PAIN
     Dosage: 10 MG, AS NEEDED
     Dates: start: 20100301
  14. FENTANYL [Concomitant]
     Indication: PAIN
     Dosage: UNK, UNK
     Dates: start: 20091101

REACTIONS (4)
  - MALAISE [None]
  - PYREXIA [None]
  - RESPIRATORY DISORDER [None]
  - URINARY TRACT INFECTION [None]
